FAERS Safety Report 9710018 (Version 1)
Quarter: 2013Q4

REPORT INFORMATION
  Report Type: Spontaneous
  Country: US (occurrence: US)
  Receive Date: 20131126
  Receipt Date: 20131126
  Transmission Date: 20140711
  Serious: Yes (Disabling, Other)
  Sender: FDA-Public Use
  Company Number: US-SA-2013SA118286

PATIENT
  Age: 62 Year
  Sex: Female

DRUGS (5)
  1. LANTUS SOLOSTAR [Suspect]
     Indication: TYPE 2 DIABETES MELLITUS
     Dosage: DOSE- 40 UNITS, PLUS MORE IF NEEDED DOSE:40 UNIT(S)
     Route: 051
  2. APIDRA SOLOSTAR [Suspect]
     Indication: TYPE 2 DIABETES MELLITUS
     Dosage: DOSE:36 UNIT(S)
     Route: 051
     Dates: start: 201308
  3. SOLOSTAR [Concomitant]
  4. SOLOSTAR [Concomitant]
     Dates: start: 201308
  5. HUMALOG [Concomitant]
     Route: 065
     Dates: start: 2008

REACTIONS (4)
  - Disability [Unknown]
  - Cardiac disorder [Unknown]
  - Neuropathy peripheral [Unknown]
  - Blood glucose increased [Recovering/Resolving]
